FAERS Safety Report 4333087-5 (Version None)
Quarter: 2004Q1

REPORT INFORMATION
  Report Type: 
  Country: None (occurrence: None)
  Receive Date: 20040330
  Receipt Date: 20040323
  Transmission Date: 20041129
  Serious: Yes (Death)
  Sender: FDA-Public Use
  Company Number: USA-2003-0011987

PATIENT
  Age: 46 Year
  Sex: Female

DRUGS (6)
  1. MORPHINE SULFATE [Suspect]
  2. PHENYTOIN [Suspect]
  3. AMITRIPTYLINE HCL [Suspect]
  4. SERTRALINE HCL [Suspect]
  5. QUETIAPINE (QUIETIAPINE) [Suspect]
  6. LORAZEPAM [Suspect]

REACTIONS (5)
  - BRONCHOPNEUMONIA [None]
  - COMA [None]
  - DRUG TOXICITY [None]
  - EPISTAXIS [None]
  - RECTAL HAEMORRHAGE [None]
